FAERS Safety Report 4377426-8 (Version None)
Quarter: 2004Q2

REPORT INFORMATION
  Report Type: 
  Country: None (occurrence: None)
  Receive Date: 20040614
  Receipt Date: 20040614
  Transmission Date: 20050107
  Serious: Yes (Hospitalization)
  Sender: FDA-Public Use
  Company Number: None

PATIENT
  Sex: Female
  Weight: 64.8644 kg

DRUGS (12)
  1. GEMCITABINE 100 MG/ML ELI LILLY [Suspect]
     Indication: PANCREATIC CARCINOMA
     Dosage: 1000 MG DAY 1 + 8 IV
     Route: 042
     Dates: start: 20040421, end: 20040607
  2. CISPLATIN [Suspect]
     Indication: PANCREATIC CARCINOMA
     Dosage: 20 MG DAY 1 AND 8 IV
     Route: 042
     Dates: start: 20040421, end: 20040607
  3. PREMARIN [Concomitant]
  4. MEDROXYPROGFESTERONE [Concomitant]
  5. PROTONIX [Concomitant]
  6. TRIAMETERENE [Concomitant]
  7. PREDNISONE [Concomitant]
  8. LORAZEPAM [Concomitant]
  9. ALBUTEROL [Concomitant]
  10. DURAGESIC [Concomitant]
  11. ZOFRAN [Concomitant]
  12. MORPHINE SULFATE [Concomitant]

REACTIONS (2)
  - UPPER GASTROINTESTINAL HAEMORRHAGE [None]
  - VISION BLURRED [None]
